FAERS Safety Report 6003824-2 (Version None)
Quarter: 2008Q4

REPORT INFORMATION
  Report Type: 
  Country: None (occurrence: None)
  Receive Date: 20081216
  Receipt Date: 20081204
  Transmission Date: 20090506
  Serious: Yes (Other)
  Sender: FDA-Public Use
  Company Number: US-ROCHE-569324

PATIENT
  Sex: Female

DRUGS (3)
  1. PEG-INTERFERON A-2A (RO 25-8310) [Suspect]
     Dosage: FORM: PREFILLED SYRINGE; THERAPY INTERRUPTED FOR 1 WEEK IN MAY 2008, PATIENT IN WEEK 41 OF THERAPY
     Route: 065
     Dates: start: 20080214
  2. RIBAVIRIN [Suspect]
     Dosage: PATIENT IN 41 WEEK OF THERAPY
     Route: 065
  3. RIBAVIRIN [Suspect]
     Route: 065
     Dates: start: 20080214

REACTIONS (14)
  - ALOPECIA [None]
  - ANOREXIA [None]
  - CHEST DISCOMFORT [None]
  - DYSGEUSIA [None]
  - DYSPNOEA [None]
  - FATIGUE [None]
  - FEELING ABNORMAL [None]
  - HAEMOPTYSIS [None]
  - INCREASED TENDENCY TO BRUISE [None]
  - MUSCLE ATROPHY [None]
  - NASOPHARYNGITIS [None]
  - PYREXIA [None]
  - VISION BLURRED [None]
  - WEIGHT DECREASED [None]
